FAERS Safety Report 23740567 (Version 1)
Quarter: 2024Q2

REPORT INFORMATION
  Report Type: Spontaneous
  Country: US (occurrence: US)
  Receive Date: 20240415
  Receipt Date: 20240415
  Transmission Date: 20240715
  Serious: Yes (Hospitalization, Other)
  Sender: FDA-Public Use
  Company Number: US-NOVOPROD-1201315

PATIENT
  Age: 26 Year
  Sex: Female

DRUGS (1)
  1. NOVOLOG [Suspect]
     Active Substance: INSULIN ASPART
     Indication: Type 1 diabetes mellitus
     Dosage: 40 IU, QD
     Route: 058
     Dates: start: 20240204, end: 20240206

REACTIONS (8)
  - Diabetic ketoacidosis [Recovered/Resolved]
  - Blood glucose increased [Recovered/Resolved]
  - Blood potassium decreased [Unknown]
  - Chest pain [Unknown]
  - Dizziness [Unknown]
  - Heart rate increased [Unknown]
  - Blood magnesium decreased [Unknown]
  - Drug ineffective [Unknown]

NARRATIVE: CASE EVENT DATE: 20240205
